FAERS Safety Report 9160278 (Version 1)
Quarter: 2013Q1

REPORT INFORMATION
  Report Type: Spontaneous
  Country: MX (occurrence: None)
  Receive Date: 20130219
  Receipt Date: 20130219
  Transmission Date: 20140127
  Serious: Yes (Hospitalization)
  Sender: FDA-Public Use
  Company Number: ENTC2013-0054

PATIENT
  Age: 87 Year
  Sex: Female

DRUGS (2)
  1. STALEVO (LEVODOPA, CARBIDOPA, ENTACAPONE) [Suspect]
     Indication: PARKINSON^S DISEASE
     Route: 048
     Dates: end: 200908
  2. KEPPRA [Concomitant]

REACTIONS (1)
  - Pulmonary embolism [None]
